FAERS Safety Report 4293529-0 (Version None)
Quarter: 2004Q1

REPORT INFORMATION
  Report Type: 
  Country: None (occurrence: None)
  Receive Date: 20040210
  Receipt Date: 20040127
  Transmission Date: 20041129
  Serious: Yes (Hospitalization)
  Sender: FDA-Public Use
  Company Number: 03P-056-0213934-00

PATIENT
  Age: 69 Year
  Sex: Male

DRUGS (13)
  1. DEPAKENE [Suspect]
     Indication: BRAIN NEOPLASM MALIGNANT
     Dosage: SEE IMAGE
     Route: 048
     Dates: start: 20021227, end: 20021227
  2. DEPAKENE [Suspect]
     Indication: BRAIN NEOPLASM MALIGNANT
     Dosage: SEE IMAGE
     Route: 048
     Dates: start: 20030103, end: 20030116
  3. DEPAKENE [Suspect]
     Indication: BRAIN NEOPLASM MALIGNANT
     Dosage: SEE IMAGE
     Route: 048
     Dates: start: 20021206, end: 20030130
  4. PROCARBAZINE HYDROCHLORIDE [Suspect]
     Indication: BRAIN NEOPLASM MALIGNANT
     Dosage: 50 MG, 2 IN 1 D, ORAL
     Route: 048
     Dates: start: 20030103, end: 20030116
  5. LOMUSTINE [Suspect]
     Indication: BRAIN NEOPLASM MALIGNANT
     Dosage: SEE IMAGE
     Route: 048
     Dates: start: 20021227, end: 20021227
  6. LOMUSTINE [Suspect]
     Indication: BRAIN NEOPLASM MALIGNANT
     Dosage: SEE IMAGE
     Route: 048
     Dates: start: 20030103, end: 20030103
  7. LOMUSTINE [Suspect]
     Indication: BRAIN NEOPLASM MALIGNANT
     Dosage: SEE IMAGE
     Route: 048
     Dates: start: 20030119, end: 20030123
  8. LOMUSTINE [Suspect]
     Indication: BRAIN NEOPLASM MALIGNANT
     Dosage: SEE IMAGE
     Route: 048
     Dates: start: 20030124, end: 20030124
  9. CEFOTAXIME SODIUM [Suspect]
     Indication: BRAIN NEOPLASM MALIGNANT
     Dosage: 3000 MG, 1 IN 1 D, ORAL
     Route: 048
     Dates: start: 20030119, end: 20030123
  10. VINCRISTINE SULFATE [Suspect]
     Indication: BRAIN NEOPLASM MALIGNANT
     Dosage: 2 MG, 1 IN 1 D
     Dates: start: 20030103, end: 20030124
  11. ACETAMINOPHEN AND CODEINE PHOSPHATE [Suspect]
     Dosage: 3000 MG, 1 IN 1 D, ORAL
     Route: 048
     Dates: start: 20021206, end: 20030130
  12. CLORAZEPATE DIPOTASSIUM [Concomitant]
  13. GENTAMICIN SULFATE [Concomitant]

REACTIONS (9)
  - ADRENAL INSUFFICIENCY [None]
  - APLASIA [None]
  - CHILLS [None]
  - CIRCULATORY COLLAPSE [None]
  - DERMATITIS BULLOUS [None]
  - HEPATITIS CHOLESTATIC [None]
  - PURPURA [None]
  - PYREXIA [None]
  - TOXIC EPIDERMAL NECROLYSIS [None]
